FAERS Safety Report 9162100 (Version 2)
Quarter: 2013Q2

REPORT INFORMATION
  Report Type: Spontaneous
  Country: TR (occurrence: None)
  Receive Date: 20130220
  Receipt Date: 20130410
  Transmission Date: 20140414
  Serious: Yes (Hospitalization)
  Sender: FDA-Public Use
  Company Number: NSR_01025_2013

PATIENT
  Age: 42 Year
  Sex: Male

DRUGS (4)
  1. FLUOXETINE [Suspect]
     Indication: PRODUCT USED FOR UNKNOWN INDICATION
     Dosage: 40 MG PER DAY 6 YEARS UNTIL NOT CONTINUING
  2. QUETIAPINE [Suspect]
     Indication: PRODUCT USED FOR UNKNOWN INDICATION
     Dosage: 1000 MG PER DAY 6 YEARS
  3. UNSPECIFIED INGREDIENT [Suspect]
     Indication: HAEMORRHOIDS
     Dosage: (1 DF 1X ONE SPOONFUL)
  4. THYROID REPLACEMENT THERAPY [Concomitant]

REACTIONS (17)
  - Nausea [None]
  - Vomiting [None]
  - Hyperhidrosis [None]
  - Tremor [None]
  - Confusional state [None]
  - Agitation [None]
  - Hyperreflexia [None]
  - Disorientation [None]
  - Delirium [None]
  - Hallucination, visual [None]
  - Leukocytosis [None]
  - Neuroleptic malignant syndrome [None]
  - Bradykinesia [None]
  - Akinesia [None]
  - Muscle rigidity [None]
  - Hyperthermia [None]
  - Metabolic function test abnormal [None]
